FAERS Safety Report 7658704-3 (Version None)
Quarter: 2011Q3

REPORT INFORMATION
  Report Type: 
  Country: None (occurrence: None)
  Receive Date: 20110805
  Receipt Date: 20110728
  Transmission Date: 20111222
  Serious: Yes (Hospitalization, Other)
  Sender: FDA-Public Use
  Company Number: US-BAYER-200929752NA

PATIENT
  Age: 35 Year
  Sex: Female
  Weight: 58.503 kg

DRUGS (8)
  1. YASMIN [Suspect]
     Dosage: UNK UNK, QD
     Route: 048
     Dates: start: 20061201, end: 20070601
  2. LEVAQUIN [Concomitant]
  3. MEDROL [Concomitant]
  4. YAZ [Suspect]
     Dosage: UNK UNK, QD
     Route: 048
     Dates: start: 20070601, end: 20070801
  5. NORFLEX [Concomitant]
  6. FLEXERIL [Concomitant]
  7. MULTI-VITAMIN [Concomitant]
  8. TORADOL [Concomitant]

REACTIONS (4)
  - CHEST PAIN [None]
  - PULMONARY EMBOLISM [None]
  - EMOTIONAL DISTRESS [None]
  - DYSPNOEA [None]
